FAERS Safety Report 8371170-8 (Version None)
Quarter: 2012Q1

REPORT INFORMATION
  Report Type: 
  Country: None (occurrence: None)
  Receive Date: 20120323
  Receipt Date: 20110728
  Transmission Date: 20120608
  Serious: Yes (Other)
  Sender: FDA-Public Use
  Company Number: 163-21880-10111137

PATIENT
  Age: 68 Year
  Sex: Female

DRUGS (6)
  1. ZOMETA [Concomitant]
  2. DEXAMETHASONE [Concomitant]
  3. REVLIMID [Suspect]
     Indication: MULTIPLE MYELOMA
     Dosage: 25 MG, DAILY X21 DAYS Q 28 DAYS, PO 15 MG, Q MON-WED-FRI X21 DAYS Q 28 DAYS, PO 15 MG, ONCE PER WEEK
     Route: 048
     Dates: start: 20100910, end: 20101104
  4. REVLIMID [Suspect]
     Indication: MULTIPLE MYELOMA
     Dosage: 25 MG, DAILY X21 DAYS Q 28 DAYS, PO 15 MG, Q MON-WED-FRI X21 DAYS Q 28 DAYS, PO 15 MG, ONCE PER WEEK
     Route: 048
     Dates: start: 20101105, end: 20101202
  5. REVLIMID [Suspect]
     Indication: MULTIPLE MYELOMA
     Dosage: 25 MG, DAILY X21 DAYS Q 28 DAYS, PO 15 MG, Q MON-WED-FRI X21 DAYS Q 28 DAYS, PO 15 MG, ONCE PER WEEK
     Route: 048
     Dates: start: 20091028, end: 20100506
  6. REVLIMID [Suspect]
     Indication: MULTIPLE MYELOMA
     Dosage: 25 MG, DAILY X21 DAYS Q 28 DAYS, PO 15 MG, Q MON-WED-FRI X21 DAYS Q 28 DAYS, PO 15 MG, ONCE PER WEEK
     Route: 048
     Dates: start: 20110106, end: 20110303

REACTIONS (4)
  - FATIGUE [None]
  - ANAEMIA [None]
  - PANCYTOPENIA [None]
  - DYSPNOEA [None]
